FAERS Safety Report 24748263 (Version 1)
Quarter: 2024Q4

REPORT INFORMATION
  Report Type: Spontaneous
  Country: PH (occurrence: PH)
  Receive Date: 20241218
  Receipt Date: 20241218
  Transmission Date: 20250115
  Serious: Yes (Other)
  Sender: OTSUKA
  Company Number: PH-OTSUKA-2024_032974

PATIENT
  Age: 48 Year
  Sex: Female

DRUGS (1)
  1. SAMSCA [Suspect]
     Active Substance: TOLVAPTAN
     Indication: Congenital cystic kidney disease
     Dosage: 15 MG, QD
     Route: 065
     Dates: start: 2003

REACTIONS (4)
  - Polycystic liver disease [Unknown]
  - Inability to afford medication [Unknown]
  - Product dose omission issue [Unknown]
  - Off label use [Unknown]
